FAERS Safety Report 8533690-2 (Version None)
Quarter: 2012Q3

REPORT INFORMATION
  Report Type: 
  Country: None (occurrence: None)
  Receive Date: 20120724
  Receipt Date: 20120710
  Transmission Date: 20120928
  Serious: Yes (Hospitalization)
  Sender: FDA-Public Use
  Company Number: US-VIROPHARMA INCORPORATED-20120614CINRY3060

PATIENT
  Sex: Female

DRUGS (5)
  1. CINRYZE [Suspect]
     Indication: HEREDITARY ANGIOEDEMA
     Dates: start: 20120201, end: 20120601
  2. CINRYZE [Suspect]
     Dates: start: 20120701
  3. ADVAIR DISKUS 100/50 [Concomitant]
     Indication: ASTHMA
  4. VALPROIC ACID [Concomitant]
     Indication: HEADACHE
     Dosage: UNKNOWN
     Route: 065
  5. ALBUTEROL [Concomitant]
     Indication: ASTHMA
     Dosage: UNKNOWN
     Route: 065

REACTIONS (4)
  - STAPHYLOCOCCAL SEPSIS [None]
  - DRUG DOSE OMISSION [None]
  - PSEUDOMONAL SEPSIS [None]
  - DEVICE RELATED SEPSIS [None]
